FAERS Safety Report 15015967 (Version 2)
Quarter: 2018Q2

REPORT INFORMATION
  Report Type: Spontaneous
  Country: US (occurrence: US)
  Receive Date: 20180615
  Receipt Date: 20180619
  Transmission Date: 20180711
  Serious: No
  Sender: FDA-Public Use
  Company Number: US-PFIZER INC-2018245478

PATIENT
  Age: 69 Year
  Sex: Female
  Weight: 68 kg

DRUGS (3)
  1. IBRANCE [Suspect]
     Active Substance: PALBOCICLIB
     Indication: BREAST CANCER METASTATIC
     Dosage: 125 MG, CYCLIC (21 DAYS ON 7 DAYS OFF)
     Route: 048
     Dates: start: 20180524
  2. MORPHINE [Suspect]
     Active Substance: MORPHINE
     Indication: PAIN
     Dosage: 15 MG, 2X/DAY
     Route: 048
     Dates: start: 201803
  3. NORCO [Suspect]
     Active Substance: ACETAMINOPHEN\HYDROCODONE BITARTRATE
     Indication: PAIN
     Dosage: UNK, AS NEEDED, ([HYDROCODONE BITARTRATE 5 MG]/[PARACETAMOL 325 MG] EVERY 6 HOURS)
     Route: 048
     Dates: start: 201803

REACTIONS (1)
  - Confusional state [Unknown]
